FAERS Safety Report 6966402-4 (Version None)
Quarter: 2010Q3

REPORT INFORMATION
  Report Type: 
  Country: None (occurrence: None)
  Receive Date: 20100904
  Receipt Date: 20100901
  Transmission Date: 20110219
  Serious: Yes (Death)
  Sender: FDA-Public Use
  Company Number: US-CELGENEUS-163-20785-10072256

PATIENT
  Sex: Female

DRUGS (4)
  1. THALOMID [Suspect]
     Route: 048
     Dates: start: 20100105, end: 20100514
  2. PREDNISONE [Concomitant]
     Route: 065
  3. PLAQUINOL [Concomitant]
     Route: 065
  4. VICODIN [Concomitant]
     Indication: PAIN
     Route: 065

REACTIONS (1)
  - AMYOTROPHIC LATERAL SCLEROSIS [None]
